FAERS Safety Report 7673849-X (Version None)
Quarter: 2011Q3

REPORT INFORMATION
  Report Type: 
  Country: None (occurrence: None)
  Receive Date: 20110810
  Receipt Date: 20110801
  Transmission Date: 20111222
  Serious: Yes (Other)
  Sender: FDA-Public Use
  Company Number: US-JNJFOC-20110802227

PATIENT
  Age: 19 Year
  Sex: Female

DRUGS (2)
  1. WELLBUTRIN [Concomitant]
     Route: 048
  2. INVEGA SUSTENNA [Suspect]
     Indication: SCHIZOPHRENIA
     Route: 030
     Dates: start: 20110101

REACTIONS (2)
  - EYE MOVEMENT DISORDER [None]
  - MUSCLE SPASMS [None]
